FAERS Safety Report 9328015 (Version 1)
Quarter: 2013Q2

REPORT INFORMATION
  Report Type: Spontaneous
  Country: US (occurrence: US)
  Receive Date: 20130604
  Receipt Date: 20130604
  Transmission Date: 20140414
  Serious: Yes (Life-Threatening)
  Sender: FDA-Public Use
  Company Number: US-SANOFI-AVENTIS-2012SA043997

PATIENT
  Sex: Female

DRUGS (3)
  1. LANTUS [Suspect]
     Route: 058
  2. HUMALOG [Suspect]
     Route: 065
  3. GLUCAGON [Suspect]
     Route: 065

REACTIONS (1)
  - Hypoglycaemic coma [Unknown]
